FAERS Safety Report 17661353 (Version 1)
Quarter: 2020Q2

REPORT INFORMATION
  Report Type: Spontaneous
  Country: US (occurrence: US)
  Receive Date: 20200413
  Receipt Date: 20200413
  Transmission Date: 20200713
  Serious: Yes (Life-Threatening)
  Sender: FDA-Public Use
  Company Number: None

PATIENT
  Age: 34 Year
  Sex: Female
  Weight: 56.25 kg

DRUGS (2)
  1. ESTRACE [Suspect]
     Active Substance: ESTRADIOL
     Indication: VAGINAL DISORDER
     Dates: start: 20200203, end: 20200328
  2. ESTRACE [Suspect]
     Active Substance: ESTRADIOL
     Indication: SCAR
     Dates: start: 20200203, end: 20200328

REACTIONS (8)
  - Hypoaesthesia [None]
  - Blindness [None]
  - Alopecia [None]
  - Pain in jaw [None]
  - Paraesthesia [None]
  - Cerebrovascular accident [None]
  - Visual impairment [None]
  - Vestibular disorder [None]

NARRATIVE: CASE EVENT DATE: 20200320
